FAERS Safety Report 23170502 (Version 1)
Quarter: 2023Q4

REPORT INFORMATION
  Report Type: Spontaneous
  Country: US (occurrence: US)
  Receive Date: 20231110
  Receipt Date: 20231110
  Transmission Date: 20240109
  Serious: No
  Sender: FDA-Public Use
  Company Number: US-LUNDBECK-DKLU3068495

PATIENT
  Age: 81 Year
  Sex: Female
  Weight: 62.097 kg

DRUGS (1)
  1. NORTHERA [Suspect]
     Active Substance: DROXIDOPA
     Indication: Parkinson^s disease
     Route: 048

REACTIONS (2)
  - Full blood count abnormal [Unknown]
  - Decreased appetite [Unknown]
